FAERS Safety Report 8368302-4 (Version None)
Quarter: 2012Q2

REPORT INFORMATION
  Report Type: 
  Country: None (occurrence: None)
  Receive Date: 20120517
  Receipt Date: 20120502
  Transmission Date: 20120825
  Serious: Yes (Hospitalization)
  Sender: FDA-Public Use
  Company Number: US-BAXTER-2012BAX003589

PATIENT
  Sex: Female

DRUGS (4)
  1. VANCOMYCIN [Suspect]
     Indication: PERITONITIS
     Route: 033
     Dates: start: 20120404
  2. DIANEAL [Suspect]
     Indication: PERITONEAL DIALYSIS
     Route: 033
     Dates: start: 20080728, end: 20120417
  3. CEFEPIME [Suspect]
     Indication: PERITONITIS
     Dosage: 1 GRAM
     Route: 033
     Dates: start: 20120404
  4. DIANEAL [Suspect]
     Route: 033
     Dates: start: 20080728, end: 20120417

REACTIONS (3)
  - PNEUMONIA [None]
  - FUNGAL PERITONITIS [None]
  - PERITONITIS BACTERIAL [None]
